FAERS Safety Report 4752337-4 (Version None)
Quarter: 2005Q3

REPORT INFORMATION
  Report Type: 
  Country: None (occurrence: None)
  Receive Date: 20050825
  Receipt Date: 20050816
  Transmission Date: 20060218
  Serious: Yes (Hospitalization)
  Sender: FDA-Public Use
  Company Number: JP-GLAXOSMITHKLINE-B0390924A

PATIENT
  Age: 1 Month
  Sex: Female
  Weight: 0.7 kg

DRUGS (6)
  1. FLUTIDE [Suspect]
     Indication: LUNG DISORDER
     Route: 055
     Dates: start: 20050609, end: 20050718
  2. LASIX [Concomitant]
     Indication: LUNG DISORDER
     Dosage: 1MG PER DAY
     Route: 048
     Dates: start: 20050704
  3. ALDACTONE [Concomitant]
     Indication: LUNG DISORDER
     Dosage: 5MG PER DAY
     Route: 048
     Dates: start: 20050704
  4. INCREMIN [Concomitant]
     Dosage: 6ML PER DAY
     Route: 048
     Dates: start: 20050707
  5. SODIUM CHLORIDE [Concomitant]
     Dosage: 1.2ML PER DAY
     Route: 048
     Dates: start: 20050704
  6. ESPO [Concomitant]
     Dosage: .2ML PER DAY
     Route: 058
     Dates: start: 20050614

REACTIONS (1)
  - ADRENOCORTICAL INSUFFICIENCY ACUTE [None]
